FAERS Safety Report 4620169-3 (Version None)
Quarter: 2005Q1

REPORT INFORMATION
  Report Type: 
  Country: None (occurrence: None)
  Receive Date: 20050324
  Receipt Date: 20050309
  Transmission Date: 20050727
  Serious: Yes (Other)
  Sender: FDA-Public Use
  Company Number: US_0503114030

PATIENT
  Age: 7 Year
  Sex: Male

DRUGS (8)
  1. VINCRISTINE SULFATE [Suspect]
     Indication: BURKITT'S LYMPHOMA STAGE II
     Dosage: 2 MG/M2 OTHER
  2. CYCLOPHOSPHAMIDE [Concomitant]
  3. METHOTREXATE [Concomitant]
  4. HYDROCORTISONE [Concomitant]
  5. LEUCOVORIN CALCIUM [Concomitant]
  6. PREDNISONE [Concomitant]
  7. HELM COTRIMOXAZOLE [Concomitant]
  8. DEXTROSE AND NACL [Concomitant]

REACTIONS (4)
  - BACTERIAL INFECTION [None]
  - BLOOD CULTURE POSITIVE [None]
  - DISEASE RECURRENCE [None]
  - DRUG TOXICITY [None]
